FAERS Safety Report 16012334 (Version 8)
Quarter: 2020Q2

REPORT INFORMATION
  Report Type: Report from Study
  Country: AR (occurrence: AR)
  Receive Date: 20190227
  Receipt Date: 20200618
  Transmission Date: 20200713
  Serious: Yes (Hospitalization, Other)
  Sender: FDA-Public Use
  Company Number: AR-ACTELION-A-CH2019-186747

PATIENT
  Age: 36 Year
  Sex: Female
  Weight: 63 kg

DRUGS (2)
  1. MIGLUSTAT. [Suspect]
     Active Substance: MIGLUSTAT
     Indication: NIEMANN-PICK DISEASE
     Dosage: 600 MG, QD
     Route: 048
     Dates: start: 20140304
  2. MIGLUSTAT. [Suspect]
     Active Substance: MIGLUSTAT
     Dosage: 100 MG, QD
     Route: 048
     Dates: start: 201403

REACTIONS (9)
  - Medical device change [Unknown]
  - Choking [Recovering/Resolving]
  - Bronchiolitis [Unknown]
  - Rhinorrhoea [Unknown]
  - Gastroenterostomy [Recovering/Resolving]
  - Device occlusion [Unknown]
  - Cough [Recovering/Resolving]
  - Bronchitis [Recovering/Resolving]
  - Gait disturbance [Unknown]

NARRATIVE: CASE EVENT DATE: 20190215
